FAERS Safety Report 16956418 (Version 1)
Quarter: 2019Q4

REPORT INFORMATION
  Report Type: Spontaneous
  Country: US (occurrence: US)
  Receive Date: 20191023
  Receipt Date: 20191023
  Transmission Date: 20200122
  Serious: Yes (Hospitalization)
  Sender: FDA-Public Use
  Company Number: None

PATIENT
  Age: 32 Year
  Sex: Female
  Weight: 50.4 kg

DRUGS (1)
  1. NEXPLANON [Suspect]
     Active Substance: ETONOGESTREL
     Indication: CONTRACEPTION
     Dosage: ?          QUANTITY:1 SLOW RELEASE DAILY;?
     Route: 058
     Dates: start: 20190306, end: 20190722

REACTIONS (8)
  - Nausea [None]
  - Pain [None]
  - Vomiting [None]
  - Diarrhoea [None]
  - Anxiety [None]
  - Dehydration [None]
  - Retching [None]
  - Weight decreased [None]

NARRATIVE: CASE EVENT DATE: 20190320
